FAERS Safety Report 6242123-0 (Version None)
Quarter: 2009Q2

REPORT INFORMATION
  Report Type: 
  Country: None (occurrence: None)
  Receive Date: 20090624
  Receipt Date: 20071009
  Transmission Date: 20091009
  Serious: Yes (Other)
  Sender: FDA-Public Use
  Company Number: US-ASTRAZENECA-2006UW22179

PATIENT
  Age: 52 Year
  Sex: Female
  Weight: 135.2 kg

DRUGS (31)
  1. SEROQUEL [Suspect]
     Indication: SCHIZOPHRENIA
     Route: 048
     Dates: start: 19990101
  2. SEROQUEL [Suspect]
     Indication: SLEEP DISORDER
     Route: 048
     Dates: start: 19990101
  3. SEROQUEL [Suspect]
     Indication: DEPRESSION
     Route: 048
     Dates: start: 19990101
  4. SEROQUEL [Suspect]
     Dosage: 200 MG - 300 MG
     Route: 048
     Dates: start: 20030210
  5. SEROQUEL [Suspect]
     Dosage: 200 MG - 300 MG
     Route: 048
     Dates: start: 20030210
  6. SEROQUEL [Suspect]
     Dosage: 200 MG - 300 MG
     Route: 048
     Dates: start: 20030210
  7. REDUX [Concomitant]
     Dates: start: 19990101
  8. PROZAC [Concomitant]
     Dates: start: 19970816
  9. LIPITOR [Concomitant]
     Dosage: 10 MG - 20 MG
     Dates: start: 19991127
  10. AMARYL [Concomitant]
     Dosage: 2 MG - 4 MG
     Dates: start: 20020720
  11. ZESTORETIC [Concomitant]
     Indication: FLUID RETENTION
     Dosage: 12.5 MG - 20 MG
     Route: 048
     Dates: start: 20061101
  12. ZESTORETIC [Concomitant]
     Indication: BLOOD PRESSURE INCREASED
     Dosage: 12.5 MG - 20 MG
     Route: 048
     Dates: start: 20061101
  13. VYTORIN [Concomitant]
     Dosage: 10 MG / 40 MG
     Dates: start: 20061002
  14. VICOPROFEN [Concomitant]
     Dates: start: 19991027
  15. LEVOTHYROXINE [Concomitant]
     Dates: start: 20070919
  16. GLIPIZIDE [Concomitant]
     Indication: DIABETES MELLITUS
     Dates: start: 20051024
  17. LISINOPRIL [Concomitant]
     Dosage: 10 MG - 40 MG
     Dates: start: 20040127
  18. SIMVASTATIN [Concomitant]
     Dates: start: 20070501
  19. PRILOSEC [Concomitant]
     Dates: start: 20020822
  20. TRICOR [Concomitant]
     Dosage: 48 MG - 145 MG
     Dates: start: 20050401
  21. LEVAQUIN [Concomitant]
     Dates: start: 20060531
  22. LORATADINE [Concomitant]
     Dates: start: 20060531
  23. HALOPERIDOL [Concomitant]
     Dates: start: 20050713
  24. NAPROXEN [Concomitant]
     Dates: start: 20050520
  25. ACTOS [Concomitant]
     Dates: start: 20030908
  26. VIOXX [Concomitant]
     Dates: start: 20030301
  27. THIORIDAZINE HCL [Concomitant]
     Dosage: 50 MG - 100 MG
     Dates: start: 19971002
  28. INDOMETHACIN [Concomitant]
     Dates: start: 19961203
  29. RHINOFLEX [Concomitant]
     Dates: start: 20070207
  30. ASPIRIN [Concomitant]
     Dosage: 81 MG - 325 MG
     Route: 048
     Dates: start: 20060201
  31. METFORMIN HCL [Concomitant]
     Route: 048
     Dates: start: 20040112

REACTIONS (6)
  - ARTHRALGIA [None]
  - ARTHRITIS [None]
  - DIABETES MELLITUS [None]
  - DIABETIC FOOT [None]
  - TYPE 1 DIABETES MELLITUS [None]
  - TYPE 2 DIABETES MELLITUS [None]
